FAERS Safety Report 9121931 (Version 3)
Quarter: 2013Q2

REPORT INFORMATION
  Report Type: Spontaneous
  Country: US (occurrence: US)
  Receive Date: 20130227
  Receipt Date: 20130408
  Transmission Date: 20140414
  Serious: Yes (Death, Hospitalization)
  Sender: FDA-Public Use
  Company Number: US-PFIZER INC-2013070595

PATIENT
  Sex: 0

DRUGS (1)
  1. TIKOSYN [Suspect]
     Dosage: UNK

REACTIONS (4)
  - Death [Fatal]
  - Pulmonary hypertension [Unknown]
  - Cardiac failure congestive [Unknown]
  - Ischaemic cardiomyopathy [Unknown]
